FAERS Safety Report 7584248-3 (Version None)
Quarter: 2011Q2

REPORT INFORMATION
  Report Type: 
  Country: None (occurrence: None)
  Receive Date: 20110630
  Receipt Date: 20110627
  Transmission Date: 20111010
  Serious: Yes (Death, Hospitalization, Other)
  Sender: FDA-Public Use
  Company Number: US-ELI_LILLY_AND_COMPANY-US201106008009

PATIENT
  Age: 50 Year
  Sex: Female
  Weight: 96 kg

DRUGS (8)
  1. ASPIRIN [Concomitant]
     Dosage: 325 MG, QD
     Route: 065
  2. LOVENOX [Concomitant]
     Dosage: 97 MG, SECOND DOSE, 12 HOURS LATER
     Route: 048
  3. CRESTOR [Concomitant]
     Dosage: 40 MG, QD
     Route: 065
  4. EFFIENT [Suspect]
     Indication: PERCUTANEOUS CORONARY INTERVENTION
     Dosage: 60 MG, LOADING DOSE
     Route: 065
     Dates: start: 20110620, end: 20110620
  5. HYDROCHLOROTHIAZIDE [Concomitant]
     Dosage: 25 MG, QD
     Route: 065
  6. LOVENOX [Concomitant]
     Dosage: 30 MG, UNKNOWN
     Route: 042
  7. OMEPRAZOLE [Concomitant]
     Dosage: 20 MG, QD
     Route: 065
  8. LOVENOX [Concomitant]
     Dosage: 100 MG, THIRD DOSE 12 HOURS LATER
     Route: 048

REACTIONS (6)
  - DEATH [None]
  - DYSARTHRIA [None]
  - HAEMORRHAGIC STROKE [None]
  - VIITH NERVE PARALYSIS [None]
  - HYPERTENSION [None]
  - HEADACHE [None]
